FAERS Safety Report 8907087 (Version 1)
Quarter: 2012Q4

REPORT INFORMATION
  Report Type: 
  Country: US (occurrence: US)
  Receive Date: 20121114
  Receipt Date: 20121114
  Transmission Date: 20130627
  Serious: No
  Sender: FDA-Public Use
  Company Number: US-GLAXOSMITHKLINE-A0986369A

PATIENT
  Sex: Female

DRUGS (1)
  1. VELTIN [Suspect]
     Indication: ACNE
     Route: 061

REACTIONS (2)
  - Erythema [Recovered/Resolved]
  - Skin exfoliation [Unknown]
